FAERS Safety Report 10094869 (Version 1)
Quarter: 2014Q2

REPORT INFORMATION
  Report Type: Spontaneous
  Country: IT (occurrence: None)
  Receive Date: 20140418
  Receipt Date: 20140418
  Transmission Date: 20141212
  Serious: Yes (Other)
  Sender: FDA-Public Use
  Company Number: 2289464

PATIENT
  Age: 50 Year
  Sex: Female
  Weight: 61 kg

DRUGS (2)
  1. OXALIPLATIN [Suspect]
     Indication: ADENOCARCINOMA GASTRIC
     Dosage: CYCLICAL
     Route: 041
     Dates: start: 20140318, end: 20140318
  2. EPIRUBICIN [Concomitant]

REACTIONS (5)
  - Stridor [None]
  - Dyspnoea [None]
  - Paraesthesia [None]
  - Trismus [None]
  - Muscle spasms [None]
